FAERS Safety Report 20597063 (Version 1)
Quarter: 2022Q1

REPORT INFORMATION
  Report Type: Spontaneous
  Country: US (occurrence: None)
  Receive Date: 20220315
  Receipt Date: 20220315
  Transmission Date: 20220424
  Serious: Yes (Hospitalization)
  Sender: FDA-Public Use
  Company Number: None

PATIENT
  Sex: Female

DRUGS (1)
  1. CAPECITABINE [Suspect]
     Active Substance: CAPECITABINE
     Indication: Biliary obstruction
     Dosage: FREQUENCY : TWICE A DAY;?
     Route: 048
     Dates: start: 20220111

REACTIONS (3)
  - Weight decreased [None]
  - Dehydration [None]
  - Therapy change [None]
